FAERS Safety Report 19275191 (Version 1)
Quarter: 2021Q2

REPORT INFORMATION
  Report Type: Spontaneous
  Country: US (occurrence: US)
  Receive Date: 20210519
  Receipt Date: 20210519
  Transmission Date: 20210717
  Serious: Yes (Hospitalization)
  Sender: FDA-Public Use
  Company Number: NVSC2021US111345

PATIENT
  Age: 50 Year
  Sex: Male

DRUGS (2)
  1. RANITIDINE. [Suspect]
     Active Substance: RANITIDINE
     Indication: GASTROOESOPHAGEAL REFLUX DISEASE
     Dosage: 150 ? 300 MG, QD
     Route: 065
     Dates: start: 200501, end: 201911
  2. RANITIDINE. [Suspect]
     Active Substance: RANITIDINE
     Indication: GASTROOESOPHAGEAL REFLUX DISEASE
     Dosage: 150 ? 300 MG, QD
     Route: 065
     Dates: start: 200501, end: 201911

REACTIONS (2)
  - Colorectal cancer stage III [Unknown]
  - Skin cancer [Unknown]

NARRATIVE: CASE EVENT DATE: 20120101
